FAERS Safety Report 16986175 (Version 1)
Quarter: 2019Q4

REPORT INFORMATION
  Report Type: Spontaneous
  Country: US (occurrence: US)
  Receive Date: 20190919
  Receipt Date: 20190919
  Transmission Date: 20200122
  Serious: No
  Sender: FDA-Public Use
  Company Number: None

PATIENT
  Age: 46 Year
  Sex: Female
  Weight: 60.75 kg

DRUGS (9)
  1. TRIAMCINOLONE ACETONIDE 0.1% [Suspect]
     Active Substance: TRIAMCINOLONE ACETONIDE
     Indication: HYPERSENSITIVITY
     Route: 061
     Dates: start: 20190730, end: 20190805
  2. VITAMIN A [Concomitant]
     Active Substance: VITAMIN A
  3. VITAMIN D [Concomitant]
     Active Substance: VITAMIN D NOS
  4. VITAMIN B [Concomitant]
     Active Substance: VITAMIN B
  5. CALCIUM [Concomitant]
     Active Substance: CALCIUM
  6. POLYETHYLENE GLYCOL [Suspect]
     Active Substance: POLYETHYLENE GLYCOLS
  7. HYDROCORTISONE. [Suspect]
     Active Substance: HYDROCORTISONE
     Indication: HYPERSENSITIVITY
     Route: 061
     Dates: start: 20190730, end: 20190805
  8. VITAMIN C [Concomitant]
     Active Substance: ASCORBIC ACID
  9. IRON [Concomitant]
     Active Substance: IRON

REACTIONS (7)
  - Staphylococcal skin infection [None]
  - Application site rash [None]
  - Product packaging confusion [None]
  - Burning sensation [None]
  - Rash [None]
  - Post procedural infection [None]
  - Allergic reaction to excipient [None]
